FAERS Safety Report 6818147-9 (Version None)
Quarter: 2010Q3

REPORT INFORMATION
  Report Type: 
  Country: None (occurrence: None)
  Receive Date: 20100706
  Receipt Date: 20100706
  Transmission Date: 20110219
  Serious: Yes (Hospitalization)
  Sender: FDA-Public Use
  Company Number: PHHO2010DE09951

PATIENT
  Sex: Female
  Weight: 64 kg

DRUGS (12)
  1. EXELON [Suspect]
     Indication: DEMENTIA ALZHEIMER'S TYPE
     Dosage: NO TREATMENT
  2. BLINDED NO TREATMENT RECEIVED NOMED [Suspect]
     Indication: DEMENTIA ALZHEIMER'S TYPE
     Dosage: NO TREATMENT
  3. EXELON [Suspect]
     Indication: DEMENTIA ALZHEIMER'S TYPE
     Dosage: UNK
     Route: 062
     Dates: start: 20081217
  4. SEROQUEL [Concomitant]
  5. FUROSEMID [Concomitant]
  6. LEVOTHYROXINE SODIUM [Concomitant]
  7. LISINOPRIL [Concomitant]
  8. HYDROCHLOROTHIAZIDE [Concomitant]
  9. PEROCUR FORTE [Concomitant]
  10. LACTULOSE [Concomitant]
  11. CLEXANE [Concomitant]
  12. JONOSTERIL [Concomitant]

REACTIONS (1)
  - DECUBITUS ULCER [None]
